FAERS Safety Report 7788296-X (Version None)
Quarter: 2011Q3

REPORT INFORMATION
  Report Type: 
  Country: None (occurrence: None)
  Receive Date: 20110930
  Receipt Date: 20110921
  Transmission Date: 20111222
  Serious: Yes (Other)
  Sender: FDA-Public Use
  Company Number: JP-JNJFOC-20110908296

PATIENT
  Sex: Female

DRUGS (3)
  1. TOPIRAMATE [Suspect]
     Indication: EPILEPSY
     Route: 048
     Dates: start: 20110830
  2. TOPIRAMATE [Suspect]
     Route: 048
     Dates: start: 20110823
  3. TOPIRAMATE [Suspect]
     Route: 048
     Dates: start: 20110906

REACTIONS (2)
  - RENAL FAILURE ACUTE [None]
  - HEPATITIS FULMINANT [None]
